FAERS Safety Report 16881412 (Version 1)
Quarter: 2019Q4

REPORT INFORMATION
  Report Type: Spontaneous
  Country: US (occurrence: US)
  Receive Date: 20191003
  Receipt Date: 20191003
  Transmission Date: 20200122
  Serious: No
  Sender: FDA-Public Use
  Company Number: US-009507513-1910USA000888

PATIENT
  Sex: Female
  Weight: 63.49 kg

DRUGS (3)
  1. LOSARTAN. [Suspect]
     Active Substance: LOSARTAN
     Indication: HYPERTENSION
     Dosage: UNK
     Route: 048
     Dates: start: 201807
  2. ASPIRIN. [Concomitant]
     Active Substance: ASPIRIN
  3. PRINIVIL [Suspect]
     Active Substance: LISINOPRIL
     Route: 048

REACTIONS (2)
  - Acne [Not Recovered/Not Resolved]
  - Somnolence [Not Recovered/Not Resolved]
